FAERS Safety Report 19866411 (Version 1)
Quarter: 2021Q3

REPORT INFORMATION
  Report Type: Spontaneous
  Country: US (occurrence: US)
  Receive Date: 20210922
  Receipt Date: 20210922
  Transmission Date: 20211014
  Serious: No
  Sender: FDA-Public Use
  Company Number: US-LUPIN PHARMACEUTICALS INC.-2021-17834

PATIENT
  Age: 67 Year
  Sex: Female

DRUGS (10)
  1. OXYCODONE [Suspect]
     Active Substance: OXYCODONE
     Indication: POST HERPETIC NEURALGIA
  2. PREGABALINE [Concomitant]
     Active Substance: PREGABALIN
     Indication: PRURITUS
     Dosage: 50 MG, QD (FOR 1 YEAR)
     Route: 065
  3. BOTULINUM TOXIN [Concomitant]
     Active Substance: BOTULINUM TOXIN NOS
     Indication: PRURITUS
     Dosage: UNK
     Route: 065
  4. CYCLOSPORINE. [Concomitant]
     Active Substance: CYCLOSPORINE
     Indication: PRURITUS
     Dosage: 100 MG, BID (FOR 1 MONTH)
     Route: 065
  5. BOTULINUM TOXIN [Concomitant]
     Active Substance: BOTULINUM TOXIN NOS
     Indication: POST HERPETIC NEURALGIA
  6. OXYCODONE [Suspect]
     Active Substance: OXYCODONE
     Indication: PRURITUS
     Dosage: 30 MILLIGRAM, QD
     Route: 065
     Dates: start: 202102
  7. CYCLOSPORINE. [Concomitant]
     Active Substance: CYCLOSPORINE
     Indication: POST HERPETIC NEURALGIA
  8. PREGABALINE [Concomitant]
     Active Substance: PREGABALIN
     Indication: POST HERPETIC NEURALGIA
  9. MIRTAZAPIN [Concomitant]
     Active Substance: MIRTAZAPINE
     Indication: PRURITUS
     Dosage: 15 MG, QD, NIGHTLY
     Route: 065
  10. MIRTAZAPIN [Concomitant]
     Active Substance: MIRTAZAPINE
     Indication: POST HERPETIC NEURALGIA

REACTIONS (1)
  - Pruritus [Recovered/Resolved]
